FAERS Safety Report 25545985 (Version 1)
Quarter: 2025Q3

REPORT INFORMATION
  Report Type: Spontaneous
  Country: EU (occurrence: EU)
  Receive Date: 20250712
  Receipt Date: 20250712
  Transmission Date: 20251021
  Serious: Yes (Other)
  Sender: STRIDES
  Company Number: EU-STRIDES ARCOLAB LIMITED-2025SP008534

PATIENT
  Sex: Male

DRUGS (12)
  1. HYDROXYZINE HYDROCHLORIDE [Suspect]
     Active Substance: HYDROXYZINE HYDROCHLORIDE
     Indication: Product used for unknown indication
     Route: 065
  2. DOXYLAMINE [Suspect]
     Active Substance: DOXYLAMINE
     Indication: Product used for unknown indication
     Route: 065
  3. KETAMINE [Suspect]
     Active Substance: KETAMINE
     Indication: Product used for unknown indication
     Route: 065
  4. SILDENAFIL [Suspect]
     Active Substance: SILDENAFIL
     Indication: Product used for unknown indication
     Route: 065
  5. ZOPICLONE [Suspect]
     Active Substance: ZOPICLONE
     Indication: Product used for unknown indication
     Route: 065
  6. COCAINE [Suspect]
     Active Substance: COCAINE
     Indication: Product used for unknown indication
     Route: 065
  7. ALCOHOL [Suspect]
     Active Substance: ALCOHOL
     Indication: Product used for unknown indication
     Route: 065
  8. CATHINONE [Concomitant]
     Active Substance: CATHINONE
     Indication: Product used for unknown indication
     Route: 065
  9. OXYBATE [Concomitant]
     Active Substance: OXYBATE
     Indication: Product used for unknown indication
     Route: 065
  10. MIDOMAFETAMINE [Concomitant]
     Active Substance: MIDOMAFETAMINE
     Indication: Product used for unknown indication
     Route: 065
  11. BENZOYLECGONINE [Concomitant]
     Active Substance: BENZOYLECGONINE
     Indication: Product used for unknown indication
     Route: 065
  12. ECGONINE METHYL ESTER [Concomitant]
     Active Substance: ECGONINE METHYL ESTER
     Indication: Product used for unknown indication
     Route: 065

REACTIONS (1)
  - Drug abuse [Unknown]
